FAERS Safety Report 5762960-6 (Version None)
Quarter: 2008Q2

REPORT INFORMATION
  Report Type: 
  Country: None (occurrence: None)
  Receive Date: 20080609
  Receipt Date: 20080527
  Transmission Date: 20081010
  Serious: Yes (Death, Hospitalization)
  Sender: FDA-Public Use
  Company Number: FI-ROCHE-567062

PATIENT
  Age: 57 Year
  Sex: Female

DRUGS (2)
  1. XELODA [Suspect]
     Dosage: DOSAGE REGIMEN 1500 MG X2
     Route: 048
     Dates: start: 20080225, end: 20080302
  2. NAVELBINE [Concomitant]
     Dosage: 60 MG RECEIVED ON DAY 1
     Route: 048
     Dates: start: 20080225

REACTIONS (6)
  - DIARRHOEA [None]
  - FEBRILE NEUTROPENIA [None]
  - GENERAL PHYSICAL HEALTH DETERIORATION [None]
  - ILEUS [None]
  - NAUSEA [None]
  - VOMITING [None]
